FAERS Safety Report 23952116 (Version 6)
Quarter: 2025Q3

REPORT INFORMATION
  Report Type: Report from Study
  Country: CA (occurrence: CA)
  Receive Date: 20240607
  Receipt Date: 20250808
  Transmission Date: 20251020
  Serious: Yes (Hospitalization, Other)
  Sender: ELI LILLY AND COMPANY
  Company Number: CA-ELI_LILLY_AND_COMPANY-CA202311007975

PATIENT
  Age: 75 Year
  Sex: Female

DRUGS (8)
  1. VERZENIO [Suspect]
     Active Substance: ABEMACICLIB
     Indication: Breast cancer metastatic
     Route: 065
  2. VERZENIO [Suspect]
     Active Substance: ABEMACICLIB
     Dosage: 100 MG, BID
     Route: 065
     Dates: start: 202310, end: 202407
  3. VERZENIO [Suspect]
     Active Substance: ABEMACICLIB
     Dosage: 100 MG, BID
     Route: 065
  4. VERZENIO [Suspect]
     Active Substance: ABEMACICLIB
     Dosage: 50 MG, BID
     Route: 065
  5. VERZENIO [Suspect]
     Active Substance: ABEMACICLIB
     Dosage: 50 MG, BID
     Route: 065
  6. FASLODEX [Concomitant]
     Active Substance: FULVESTRANT
     Indication: Product used for unknown indication
  7. FEMARA [Concomitant]
     Active Substance: LETROZOLE
     Indication: Product used for unknown indication
  8. NOLVADEX [Concomitant]
     Active Substance: TAMOXIFEN CITRATE
     Indication: Product used for unknown indication

REACTIONS (8)
  - Atrial fibrillation [Unknown]
  - COVID-19 [Unknown]
  - Haemoglobin decreased [Unknown]
  - Full blood count decreased [Unknown]
  - Feeling cold [Unknown]
  - Dizziness [Unknown]
  - Asthenia [Unknown]
  - Platelet count decreased [Unknown]
